FAERS Safety Report 7025055-X (Version None)
Quarter: 2010Q4

REPORT INFORMATION
  Report Type: 
  Country: None (occurrence: None)
  Receive Date: 20101001
  Receipt Date: 20100706
  Transmission Date: 20110411
  Serious: Yes (Hospitalization, Other)
  Sender: FDA-Public Use
  Company Number: US-BAYER-200938767NA

PATIENT
  Age: 20 Year
  Sex: Female
  Weight: 63 kg

DRUGS (16)
  1. YAZ [Suspect]
     Indication: ORAL CONTRACEPTION
     Route: 048
     Dates: start: 20070101, end: 20090916
  2. ASCORBIC ACID [Concomitant]
  3. DILADID [Concomitant]
  4. IBUPROFEN [Concomitant]
  5. FLAGYL [Concomitant]
  6. CIPROFLOXACIN HCL [Concomitant]
  7. COMPAZINE [Concomitant]
  8. LEVAQUIN [Concomitant]
  9. PHENAZOPYRIDINE HCL TAB [Concomitant]
  10. INDOMETHACIN [Concomitant]
  11. PHENERGAN [Concomitant]
  12. TRAMADOL HCL [Concomitant]
  13. URSODIOL [Concomitant]
  14. PERCOCET [Concomitant]
  15. METRONIDAZOLE [Concomitant]
  16. ZOFRAN [Concomitant]

REACTIONS (6)
  - ABDOMINAL PAIN UPPER [None]
  - BILIARY DYSKINESIA [None]
  - CHOLECYSTITIS CHRONIC [None]
  - FLANK PAIN [None]
  - NAUSEA [None]
  - VERTIGO [None]
